FAERS Safety Report 15474830 (Version 1)
Quarter: 2018Q4

REPORT INFORMATION
  Report Type: Spontaneous
  Country: IT (occurrence: IT)
  Receive Date: 20181008
  Receipt Date: 20181008
  Transmission Date: 20190205
  Serious: Yes (Disabling)
  Sender: FDA-Public Use
  Company Number: IT-PFIZER INC-2018402307

PATIENT
  Age: 49 Year
  Sex: Male
  Weight: 73 kg

DRUGS (2)
  1. SIVASTIN [Suspect]
     Active Substance: SIMVASTATIN
  2. TORVAST [Suspect]
     Active Substance: ATORVASTATIN

REACTIONS (2)
  - Asthenia [Unknown]
  - Myalgia [Unknown]

NARRATIVE: CASE EVENT DATE: 20081201
